FAERS Safety Report 17868205 (Version 2)
Quarter: 2020Q2

REPORT INFORMATION
  Report Type: Spontaneous
  Country: US (occurrence: US)
  Receive Date: 20200605
  Receipt Date: 20200618
  Transmission Date: 20200714
  Serious: Yes (Other)
  Sender: FDA-Public Use
  Company Number: US-GILEAD-2020-0469507

PATIENT
  Age: 69 Year
  Sex: Male
  Weight: 112.5 kg

DRUGS (26)
  1. ACETAMINOPHEN. [Concomitant]
     Active Substance: ACETAMINOPHEN
     Dosage: UNK
     Dates: start: 20200519
  2. ATORVASTATIN [Concomitant]
     Active Substance: ATORVASTATIN
  3. IBRUTINIB [Concomitant]
     Active Substance: IBRUTINIB
  4. ASPIRIN (E.C.) [Concomitant]
     Active Substance: ASPIRIN
  5. CARVEDILOL. [Concomitant]
     Active Substance: CARVEDILOL
  6. DONEPEZIL. [Concomitant]
     Active Substance: DONEPEZIL
  7. IPRATROPIUM BROMIDE AND ALBUTEROL SULFATE [Concomitant]
     Active Substance: ALBUTEROL SULFATE\IPRATROPIUM BROMIDE
  8. PANTOPRAZOLE [Concomitant]
     Active Substance: PANTOPRAZOLE
  9. FAMOTIDINE. [Concomitant]
     Active Substance: FAMOTIDINE
  10. FUROSEMIDE. [Concomitant]
     Active Substance: FUROSEMIDE
  11. INSULIN GLARGINE [Concomitant]
     Active Substance: INSULIN GLARGINE
  12. LORATADINE. [Concomitant]
     Active Substance: LORATADINE
  13. MONTELUKAST [Concomitant]
     Active Substance: MONTELUKAST SODIUM
  14. TAMSULOSIN [Concomitant]
     Active Substance: TAMSULOSIN
  15. BENZTROPINE [BENZATROPINE] [Concomitant]
     Active Substance: BENZTROPINE
  16. METHYLPREDNISOLONE SODIUM SUCCINATE. [Concomitant]
     Active Substance: METHYLPREDNISOLONE SODIUM SUCCINATE
  17. REMDESIVIR. [Suspect]
     Active Substance: REMDESIVIR
     Indication: COVID-19
     Dosage: 200 MG, QD
     Route: 042
     Dates: start: 20200519, end: 20200519
  18. REMDESIVIR. [Suspect]
     Active Substance: REMDESIVIR
     Dosage: 100 MG, QD
     Route: 042
     Dates: start: 20200521, end: 20200523
  19. GUAIFENESIN. [Concomitant]
     Active Substance: GUAIFENESIN
  20. DIVALPROEX [Concomitant]
     Active Substance: DIVALPROEX SODIUM
  21. ZOSYN [Concomitant]
     Active Substance: PIPERACILLIN SODIUM\TAZOBACTAM SODIUM
  22. AMLODIPINE [Concomitant]
     Active Substance: AMLODIPINE BESYLATE
  23. APIXABAN [Concomitant]
     Active Substance: APIXABAN
  24. INSULIN REGULAR HM [Concomitant]
     Active Substance: INSULIN NOS
  25. QUETIAPINE. [Concomitant]
     Active Substance: QUETIAPINE
  26. ZINC SULFATE. [Concomitant]
     Active Substance: ZINC SULFATE

REACTIONS (2)
  - Ventricular tachycardia [Recovered/Resolved]
  - Pyrexia [Recovered/Resolved]

NARRATIVE: CASE EVENT DATE: 20200519
